FAERS Safety Report 4927695-8 (Version None)
Quarter: 2006Q1

REPORT INFORMATION
  Report Type: 
  Country: None (occurrence: None)
  Receive Date: 20060228
  Receipt Date: 20060221
  Transmission Date: 20060701
  Serious: Yes (Hospitalization)
  Sender: FDA-Public Use
  Company Number: GB-MERCK-0602GBR00120

PATIENT
  Age: 51 Year
  Sex: Female

DRUGS (19)
  1. HEPARIN [Concomitant]
     Route: 065
  2. ENOXAPARIN SODIUM [Concomitant]
     Route: 065
  3. HYDROCORTONE [Suspect]
     Route: 048
  4. LEVOTHYROXINE SODIUM [Suspect]
     Route: 065
  5. CLOZAPINE [Suspect]
     Route: 065
  6. CIPROFLOXACIN [Suspect]
     Route: 065
  7. VALPROIC ACID [Suspect]
     Route: 065
  8. RANITIDINE [Suspect]
     Route: 065
  9. FENTANYL [Suspect]
     Route: 065
  10. ACETAMINOPHEN [Suspect]
     Route: 065
  11. FLUCONAZOLE [Suspect]
     Route: 065
  12. AMISULPRIDE [Concomitant]
     Route: 065
  13. LITHIUM HYDROXIDE [Concomitant]
     Route: 065
  14. LACTULOSE [Concomitant]
     Route: 065
  15. MIDAZOLAM [Concomitant]
     Route: 065
  16. PROPOFOL [Concomitant]
     Route: 065
  17. NOREPINEPHRINE HYDROCHLORIDE [Concomitant]
     Route: 065
  18. POTASSIUM (UNSPECIFIED) [Concomitant]
     Route: 065
  19. INSULIN [Concomitant]
     Route: 065

REACTIONS (1)
  - LOSS OF CONSCIOUSNESS [None]
